FAERS Safety Report 9408985 (Version 3)
Quarter: 2013Q4

REPORT INFORMATION
  Report Type: Spontaneous
  Country: IT (occurrence: IT)
  Receive Date: 20130719
  Receipt Date: 20131121
  Transmission Date: 20140711
  Serious: Yes (Hospitalization)
  Sender: FDA-Public Use
  Company Number: IT-RANBAXY-2013R1-71131

PATIENT
  Age: 19 Year
  Sex: Male

DRUGS (5)
  1. PARACETAMOL [Suspect]
     Indication: OROPHARYNGEAL PAIN
     Dosage: 1000 MG, DAILY
     Route: 048
     Dates: start: 20130602, end: 20130605
  2. OKI [Suspect]
     Indication: OROPHARYNGEAL PAIN
     Dosage: 400 MG, DAILY
     Route: 048
     Dates: start: 20130602, end: 20130605
  3. BETAMETHASONE [Concomitant]
     Indication: OROPHARYNGEAL PAIN
     Dosage: UNK
     Route: 065
     Dates: start: 20130606, end: 20130606
  4. AMOXICILLIN TRIHYDRATE/CLAVULANATE POTASSIUM [Concomitant]
     Indication: OROPHARYNGEAL PAIN
     Dosage: UNK
     Route: 065
     Dates: start: 20130607, end: 20130609
  5. SODIUM PREDNISOLONE HEMISUCCINATE [Concomitant]
     Indication: RASH
     Dosage: UNK
     Route: 065
     Dates: start: 20130607, end: 20130608

REACTIONS (1)
  - Stevens-Johnson syndrome [Recovering/Resolving]
